FAERS Safety Report 10537821 (Version 1)
Quarter: 2014Q4

REPORT INFORMATION
  Report Type: Spontaneous
  Country: CN (occurrence: None)
  Receive Date: 20141021
  Receipt Date: 20141021
  Transmission Date: 20150529
  Serious: Yes (Other)
  Sender: FDA-Public Use
  Company Number: FK201401892

PATIENT
  Age: 58 Year
  Sex: Male

DRUGS (4)
  1. VANCOMYCIN [Suspect]
     Active Substance: VANCOMYCIN
     Indication: INFECTION
     Route: 042
     Dates: start: 20130523, end: 20130529
  2. NOVAMIN [Suspect]
     Active Substance: PROCHLORPERAZINE MALEATE
     Indication: MALNUTRITION
     Route: 042
     Dates: start: 20130523, end: 20130529
  3. INTRALIPID [Suspect]
     Active Substance: EGG PHOSPHOLIPIDS\GLYCERIN\SOYBEAN OIL
     Indication: MALNUTRITION
     Route: 042
     Dates: start: 20130523, end: 20130529
  4. SODIUM CHLORIDE INJECTION (SODIUM CHLORIDE) [Concomitant]

REACTIONS (1)
  - Hyperpyrexia [None]

NARRATIVE: CASE EVENT DATE: 20130523
